FAERS Safety Report 10197264 (Version 2)
Quarter: 2014Q2

REPORT INFORMATION
  Report Type: Spontaneous
  Country: BR (occurrence: BR)
  Receive Date: 20140527
  Receipt Date: 20140630
  Transmission Date: 20141212
  Serious: Yes (Other)
  Sender: FDA-Public Use
  Company Number: PHHY2014BR064376

PATIENT
  Sex: Female

DRUGS (6)
  1. FORASEQ [Suspect]
     Dosage: UNK
  2. LOSARTAN [Suspect]
     Indication: BLOOD PRESSURE INCREASED
     Dosage: UNK UKN, UNK
  3. QUETROS [Suspect]
     Dosage: UNK UKN, UNK
  4. RIVOTRIL [Suspect]
     Dosage: UNK UKN, UNK
  5. NEOZINE//LEVOMEPROMAZINE HYDROCHLORIDE [Suspect]
     Indication: INSOMNIA
     Dosage: UNK UKN, QD (AT NIGHT)
  6. MENELAT [Suspect]
     Indication: DEPRESSION
     Dosage: UNK UKN, UNK

REACTIONS (4)
  - Dementia Alzheimer^s type [Unknown]
  - Blood pressure abnormal [Unknown]
  - Insomnia [Unknown]
  - Depression [Unknown]
